FAERS Safety Report 6901669-X (Version None)
Quarter: 2010Q3

REPORT INFORMATION
  Report Type: 
  Country: None (occurrence: None)
  Receive Date: 20100802
  Receipt Date: 20100802
  Transmission Date: 20110219
  Serious: Yes (Hospitalization)
  Sender: FDA-Public Use
  Company Number: None

PATIENT
  Age: 50 Year
  Sex: Male
  Weight: 79.3795 kg

DRUGS (1)
  1. CHANTIX [Suspect]
     Indication: TOBACCO USER
     Dosage: PO
     Route: 048
     Dates: start: 20100312, end: 20100327

REACTIONS (2)
  - ABNORMAL BEHAVIOUR [None]
  - SEXUALLY INAPPROPRIATE BEHAVIOUR [None]
